FAERS Safety Report 9659397 (Version 1)
Quarter: 2013Q4

REPORT INFORMATION
  Report Type: Spontaneous
  Country: US (occurrence: US)
  Receive Date: 20131031
  Receipt Date: 20131031
  Transmission Date: 20140711
  Serious: Yes (Other)
  Sender: FDA-Public Use
  Company Number: US-JNJFOC-20131015805

PATIENT
  Age: 60 Year
  Sex: Male

DRUGS (3)
  1. INVEGA SUSTENNA [Suspect]
     Indication: SCHIZOPHRENIA
     Route: 030
     Dates: start: 2012
  2. ZYPREXA [Concomitant]
     Route: 048
  3. LITHIUM [Concomitant]
     Route: 048

REACTIONS (1)
  - Neutropenia [Unknown]
